FAERS Safety Report 24005222 (Version 3)
Quarter: 2025Q1

REPORT INFORMATION
  Report Type: Report from Study
  Country: CO (occurrence: CO)
  Receive Date: 20240624
  Receipt Date: 20250314
  Transmission Date: 20250408
  Serious: Yes (Other)
  Sender: RECORDATI
  Company Number: CO-ORPHANEU-2024004148

PATIENT
  Age: 29 Year
  Sex: Female
  Weight: 88 kg

DRUGS (7)
  1. ISTURISA [Suspect]
     Active Substance: OSILODROSTAT PHOSPHATE
     Indication: Pituitary-dependent Cushing^s syndrome
     Dosage: 2 MILLIGRAM, Q12H
     Route: 048
     Dates: start: 20230622, end: 202401
  2. ISTURISA [Suspect]
     Active Substance: OSILODROSTAT PHOSPHATE
     Dosage: 5 MG, Q12H
     Route: 048
     Dates: start: 202401, end: 20240611
  3. ISTURISA [Suspect]
     Active Substance: OSILODROSTAT PHOSPHATE
     Dosage: 3 MILLIGRAM, Q12H
     Route: 048
  4. LOSARTAN [Concomitant]
     Active Substance: LOSARTAN
     Indication: Hypertension
     Dosage: 50 MG, QD (EVERY 24 HOURS)
  5. LOSARTAN [Concomitant]
     Active Substance: LOSARTAN
     Dosage: 50 MG, QD (EVERY 12 HOURS)
  6. KETOCONAZOLE [Concomitant]
     Active Substance: KETOCONAZOLE
     Indication: Pituitary-dependent Cushing^s syndrome
     Dosage: 200 MILLIGRAM, Q12H
  7. ACETAZOLAMIDE [Concomitant]
     Active Substance: ACETAZOLAMIDE
     Indication: Product used for unknown indication
     Dosage: UNK  Q12H

REACTIONS (4)
  - Hepatitis cholestatic [Recovered/Resolved]
  - Hepatic steatosis [Not Recovered/Not Resolved]
  - Mean platelet volume increased [Unknown]
  - Vomiting [Recovered/Resolved]

NARRATIVE: CASE EVENT DATE: 20240526
